FAERS Safety Report 5068683-3 (Version None)
Quarter: 2006Q3

REPORT INFORMATION
  Report Type: 
  Country: None (occurrence: None)
  Receive Date: 20060802
  Receipt Date: 20060213
  Transmission Date: 20061208
  Serious: No
  Sender: FDA-Public Use
  Company Number: US-BRISTOL-MYERS SQUIBB COMPANY-13281860

PATIENT
  Age: 66 Year
  Sex: Female

DRUGS (2)
  1. COUMADIN [Suspect]
     Indication: AORTIC VALVE REPLACEMENT
     Dosage: STARTED IN VARYING DOSES, CURRENTLY TAKES 2.5 MG 1 TAB TUES + THURS, AND ONE-HALF TAB ON OTHER DAYS
     Route: 048
     Dates: start: 19920101
  2. IRON SUPPLEMENT [Concomitant]
     Route: 042
     Dates: start: 20060101

REACTIONS (1)
  - INTERNATIONAL NORMALISED RATIO FLUCTUATION [None]
